FAERS Safety Report 7483870-2 (Version None)
Quarter: 2011Q2

REPORT INFORMATION
  Report Type: 
  Country: None (occurrence: None)
  Receive Date: 20110517
  Receipt Date: 20110503
  Transmission Date: 20111010
  Serious: Yes (Hospitalization)
  Sender: FDA-Public Use
  Company Number: DE-MYLANLABS-2011S1009419

PATIENT
  Age: 65 Year
  Sex: Male

DRUGS (5)
  1. METHIMAZOLE [Suspect]
     Route: 065
  2. PROPRANOLOL [Concomitant]
     Route: 065
  3. ENOXAPARIN SODIUM [Concomitant]
     Route: 065
  4. METHIMAZOLE [Suspect]
     Indication: BASEDOW'S DISEASE
     Route: 065
  5. PROPRANOLOL [Concomitant]
     Route: 065

REACTIONS (2)
  - GASTROINTESTINAL HAEMORRHAGE [None]
  - INTERNATIONAL NORMALISED RATIO INCREASED [None]
